FAERS Safety Report 10042027 (Version 1)
Quarter: 2014Q1

REPORT INFORMATION
  Report Type: Spontaneous
  Country: US (occurrence: US)
  Receive Date: 20140327
  Receipt Date: 20140327
  Transmission Date: 20141002
  Serious: No
  Sender: FDA-Public Use
  Company Number: US-PFIZER INC-2014083442

PATIENT
  Sex: Male

DRUGS (2)
  1. ADVIL [Suspect]
     Dosage: UNK
  2. ADVIL [Suspect]
     Dosage: 8 TABLETS WITHIN 24 HOURS
     Dates: start: 201403

REACTIONS (7)
  - Overdose [Unknown]
  - Malaise [Not Recovered/Not Resolved]
  - Vomiting [Not Recovered/Not Resolved]
  - Diarrhoea [Not Recovered/Not Resolved]
  - Nausea [Not Recovered/Not Resolved]
  - Abdominal discomfort [Not Recovered/Not Resolved]
  - Sensory disturbance [Not Recovered/Not Resolved]
